FAERS Safety Report 8600096 (Version 3)
Quarter: 2012Q4

REPORT INFORMATION
  Report Type: 
  Country: JP (occurrence: JP)
  Receive Date: 20120605
  Receipt Date: 20120919
  Transmission Date: 20130627
  Serious: Yes (Life-Threatening, Hospitalization, Other)
  Sender: FDA-Public Use
  Company Number: JP-PFIZER INC-2012132530

PATIENT
  Age: 88 Year
  Sex: Male
  Weight: 71.4 kg

DRUGS (9)
  1. CELECOX [Suspect]
     Indication: BACK PAIN
     Dosage: 100 mg, 3x/day
     Route: 048
     Dates: start: 20120327, end: 20120515
  2. VOLTAREN [Suspect]
     Indication: BACK PAIN
     Dosage: 25 mg/day, as needed
     Route: 054
     Dates: start: 20120323, end: 20120515
  3. PLAVIX [Concomitant]
     Indication: PROPHYLAXIS
     Dosage: UNK
     Dates: end: 20120515
  4. FERROMIA [Concomitant]
     Indication: ANAEMIA
     Dosage: UNK
     Route: 048
  5. TAKEPRON [Concomitant]
     Indication: GASTRITIS
     Dosage: UNK
     Route: 048
  6. MUCOSTA [Concomitant]
     Indication: GASTRITIS
     Dosage: UNK
     Route: 048
     Dates: end: 20120515
  7. BIOFERMIN [Concomitant]
     Indication: CONSTIPATION
     Dosage: UNK
  8. MERISLON [Concomitant]
     Indication: DIZZINESS
     Dosage: UNK
     Dates: start: 20120321, end: 20120515
  9. ALOSENN [Concomitant]
     Indication: CONSTIPATION
     Dosage: UNK
     Dates: start: 20120407, end: 20120515

REACTIONS (4)
  - Cardiac failure acute [Recovering/Resolving]
  - Acute myocardial infarction [Recovering/Resolving]
  - Device related infection [Recovering/Resolving]
  - Intentional drug misuse [Unknown]
